FAERS Safety Report 17327454 (Version 7)
Quarter: 2020Q4

REPORT INFORMATION
  Report Type: Report from Study
  Country: CO (occurrence: CO)
  Receive Date: 20200127
  Receipt Date: 20201113
  Transmission Date: 20210113
  Serious: Yes (Other)
  Sender: FDA-Public Use
  Company Number: PHHY2019CO160385

PATIENT
  Age: 49 Year
  Sex: Female

DRUGS (2)
  1. FEMARA [Suspect]
     Active Substance: LETROZOLE
     Indication: BREAST CANCER
     Dosage: 2.5 MG, QD
     Route: 048
     Dates: start: 20190424
  2. KISQALI [Suspect]
     Active Substance: RIBOCICLIB
     Indication: BREAST CANCER METASTATIC
     Dosage: 600 MG, QD
     Route: 048
     Dates: start: 20190424

REACTIONS (31)
  - Bone pain [Unknown]
  - Arthralgia [Unknown]
  - Feeling abnormal [Unknown]
  - Headache [Unknown]
  - Second primary malignancy [Unknown]
  - Pain [Unknown]
  - Abscess oral [Unknown]
  - Jaw disorder [Unknown]
  - Pain in jaw [Unknown]
  - Memory impairment [Unknown]
  - Osteitis [Unknown]
  - Tooth loss [Unknown]
  - Oral pain [Unknown]
  - Lip and/or oral cavity cancer [Unknown]
  - Back pain [Unknown]
  - Spinal pain [Unknown]
  - Facial pain [Unknown]
  - Bone disorder [Unknown]
  - Stomatitis [Unknown]
  - General physical health deterioration [Unknown]
  - Oral mucosal exfoliation [Unknown]
  - Weight decreased [Unknown]
  - Depressed mood [Unknown]
  - Pain in extremity [Unknown]
  - Musculoskeletal chest pain [Unknown]
  - Feeding disorder [Unknown]
  - Malaise [Unknown]
  - Dysstasia [Unknown]
  - Swelling face [Unknown]
  - Aphasia [Unknown]
  - Pyrexia [Unknown]

NARRATIVE: CASE EVENT DATE: 20200116
